FAERS Safety Report 6591009-0 (Version None)
Quarter: 2010Q1

REPORT INFORMATION
  Report Type: 
  Country: None (occurrence: None)
  Receive Date: 20100212
  Receipt Date: 20100127
  Transmission Date: 20100710
  Serious: Yes (Death, Other)
  Sender: FDA-Public Use
  Company Number: 2010S1000472

PATIENT
  Sex: Male

DRUGS (27)
  1. PHOSPHOSODA FLAVOR NOT SPECIFIED [Suspect]
     Indication: COLONOSCOPY
     Dosage: PO
     Route: 048
     Dates: start: 20041014
  2. PHOSPHOSODA FLAVOR NOT SPECIFIED [Suspect]
     Indication: COLONOSCOPY
     Dosage: PO
     Route: 048
     Dates: start: 20060410
  3. PHOSPHOSODA FLAVOR NOT SPECIFIED [Suspect]
     Indication: COLONOSCOPY
     Dosage: PO
     Route: 048
     Dates: start: 20061210
  4. PROZAC [Concomitant]
  5. NIACIN [Concomitant]
  6. NOVOLOG [Concomitant]
  7. TESTOSTERONE [Concomitant]
  8. PREVACID [Concomitant]
  9. COUMADIN [Concomitant]
  10. CREON [Concomitant]
  11. ATROVENT [Concomitant]
  12. LANTUS [Concomitant]
  13. REQUIP [Concomitant]
  14. CALAN [Concomitant]
  15. HECTOROL [Concomitant]
  16. SYNTHROID [Concomitant]
  17. FUROSEMIDE [Concomitant]
  18. PHOSLO [Concomitant]
  19. LACTASE [Concomitant]
  20. EPOGEN [Concomitant]
  21. SINGULAIR [Concomitant]
  22. THIAMINE [Concomitant]
  23. SODIUM CARBONATE [Concomitant]
  24. ALOPURINOL [Concomitant]
  25. CULTURELLE [Concomitant]
  26. VANCOMYCIN HCL [Concomitant]
  27. COLCHICINE [Concomitant]

REACTIONS (3)
  - BLOOD CREATININE INCREASED [None]
  - GLOMERULAR FILTRATION RATE DECREASED [None]
  - RENAL DISORDER [None]
